FAERS Safety Report 23240120 (Version 1)
Quarter: 2023Q4

REPORT INFORMATION
  Report Type: Spontaneous
  Country: FR (occurrence: FR)
  Receive Date: 20231129
  Receipt Date: 20231129
  Transmission Date: 20240109
  Serious: Yes (Other)
  Sender: FDA-Public Use
  Company Number: None

PATIENT

DRUGS (4)
  1. VOLTAREN [Suspect]
     Active Substance: DICLOFENAC SODIUM
     Indication: Neck pain
     Dosage: 75 MG, BID (75 MG, Q12H)
     Dates: start: 20231004, end: 20231005
  2. VOLTAREN [Suspect]
     Active Substance: DICLOFENAC SODIUM
     Indication: Neck pain
  3. THIOCOLCHICOSIDE [Suspect]
     Active Substance: THIOCOLCHICOSIDE
     Indication: Muscle contractions involuntary
     Dosage: 4 MG, QD
     Route: 048
     Dates: start: 20231004, end: 20231005
  4. DOLIPRANE [Suspect]
     Active Substance: ACETAMINOPHEN
     Indication: Arthralgia
     Dosage: 1000 MG, QID, (1000 MG, Q6H)
     Route: 048
     Dates: start: 20230913, end: 20231003

REACTIONS (4)
  - Syncope [Recovered/Resolved]
  - Feeling hot [Recovered/Resolved]
  - Muscular weakness [Recovered/Resolved]
  - Pruritus [Recovered/Resolved]

NARRATIVE: CASE EVENT DATE: 20231005
